FAERS Safety Report 8897508 (Version 1)
Quarter: 2012Q4

REPORT INFORMATION
  Report Type: 
  Country: US (occurrence: US)
  Receive Date: 20121108
  Receipt Date: 20121108
  Transmission Date: 20130627
  Serious: No
  Sender: FDA-Public Use
  Company Number: US-AMGEN-USASP2012025322

PATIENT
  Age: 57 Year
  Sex: Female

DRUGS (10)
  1. ENBREL [Suspect]
     Indication: RHEUMATOID ARTHRITIS
     Dosage: 50 mg, qwk
  2. NEXIUM                             /01479302/ [Concomitant]
  3. LEVOXYL [Concomitant]
  4. MAXALT                             /01406501/ [Concomitant]
     Indication: MIGRAINE
  5. MEDROL                             /00049601/ [Concomitant]
     Dosage: UNK UNK, prn
  6. ROYAL JELLY [Concomitant]
  7. SPIRIVA HANDIHALER [Concomitant]
  8. ALBUTEROL                          /00139501/ [Concomitant]
     Dosage: UNK UNK, prn
  9. PROLIA [Concomitant]
  10. CIMZIA [Concomitant]

REACTIONS (6)
  - Joint swelling [Recovered/Resolved]
  - Therapeutic response decreased [Recovered/Resolved]
  - Urticaria [Recovered/Resolved]
  - Vulvovaginal mycotic infection [Recovered/Resolved]
  - Oral candidiasis [Recovered/Resolved]
  - Pruritus [Recovered/Resolved]
